FAERS Safety Report 5940991-0 (Version None)
Quarter: 2008Q4

REPORT INFORMATION
  Report Type: 
  Country: None (occurrence: None)
  Receive Date: 20081104
  Receipt Date: 20081028
  Transmission Date: 20090506
  Serious: Yes (Other)
  Sender: FDA-Public Use
  Company Number: PHEH2008US09764

PATIENT
  Sex: Female

DRUGS (2)
  1. VIVELLE-DOT [Suspect]
     Dosage: 0.075 UNK, UNK
     Route: 062
  2. VIVELLE-DOT [Suspect]
     Dosage: 0.0375 UNK, UNK
     Route: 062

REACTIONS (1)
  - CARDIAC FLUTTER [None]
